FAERS Safety Report 5178857-9 (Version None)
Quarter: 2006Q4

REPORT INFORMATION
  Report Type: 
  Country: None (occurrence: None)
  Receive Date: 20061208
  Receipt Date: 20061204
  Transmission Date: 20070319
  Serious: Yes (Other)
  Sender: FDA-Public Use
  Company Number: US-2006-037820

PATIENT
  Age: 20 Year
  Sex: Female
  Weight: 77.1 kg

DRUGS (2)
  1. YAZ [Suspect]
     Indication: ORAL CONTRACEPTION
     Dosage: 1 TAB (S), 1X/DAY, ORAL
     Route: 048
     Dates: start: 20061001, end: 20061101
  2. ADDERALL (AMFETAMINE SULFATE, AMFETAMINE ASPARTATE, DEXAMFETAMINE SULF [Concomitant]

REACTIONS (1)
  - DISSOCIATION [None]
